FAERS Safety Report 21558962 (Version 2)
Quarter: 2022Q4

REPORT INFORMATION
  Report Type: Report from Study
  Country: AU (occurrence: None)
  Receive Date: 20221107
  Receipt Date: 20221111
  Transmission Date: 20230112
  Serious: Yes (Hospitalization)
  Sender: FDA-Public Use
  Company Number: AU-ROCHE-3153657

PATIENT
  Age: 66 Year
  Sex: Female
  Weight: 63 kg

DRUGS (11)
  1. VEMURAFENIB [Suspect]
     Active Substance: VEMURAFENIB
     Indication: Neoplasm malignant
     Dosage: LAST DOSE OF VEMURAFENIB ADMINISTERED ON 08/JUL/2022 AT 480 MG?LAST DOSE OF VEMURAFENIB ADMINISTERED
     Route: 048
     Dates: start: 20210923
  2. VEMURAFENIB [Suspect]
     Active Substance: VEMURAFENIB
     Indication: Lung adenocarcinoma
  3. COBIMETINIB [Suspect]
     Active Substance: COBIMETINIB
     Indication: Neoplasm malignant
     Dosage: LAST DOSE OF COBIMETINIB ADMINISTERED ON 08/JUL/2022 AT 60 MG?LAST DOSE OF COBIMETINIB ADMINISTERED
     Route: 048
     Dates: start: 20210923
  4. COBIMETINIB [Suspect]
     Active Substance: COBIMETINIB
     Indication: Lung adenocarcinoma
  5. FISH OIL [Concomitant]
     Active Substance: FISH OIL
     Dosage: 2 CAPSULES
     Route: 048
     Dates: start: 20190101
  6. BLACKMORES MACU-VISION [Concomitant]
     Dosage: 1 TABLET
     Route: 048
     Dates: start: 20210801
  7. MELATONIN [Concomitant]
     Active Substance: MELATONIN
     Route: 048
     Dates: start: 20210831
  8. ONDANSETRON [Concomitant]
     Active Substance: ONDANSETRON
     Route: 048
     Dates: start: 20210901
  9. OLMESARTAN [Concomitant]
     Active Substance: OLMESARTAN
     Route: 048
     Dates: start: 20220604, end: 20220610
  10. AMLODIPINE [Concomitant]
     Active Substance: AMLODIPINE BESYLATE
     Route: 048
     Dates: start: 20220611, end: 20221007
  11. COLCHICINE [Concomitant]
     Active Substance: COLCHICINE
     Dates: start: 20220822

REACTIONS (2)
  - Pericardial effusion [Recovered/Resolved]
  - Pericardial effusion [Recovered/Resolved]

NARRATIVE: CASE EVENT DATE: 20220708
